FAERS Safety Report 8449019-4 (Version None)
Quarter: 2012Q2

REPORT INFORMATION
  Report Type: 
  Country: None (occurrence: None)
  Receive Date: 20120619
  Receipt Date: 20120611
  Transmission Date: 20120825
  Serious: Yes (Hospitalization)
  Sender: FDA-Public Use
  Company Number: US-ABBOTT-12P-163-0944854-00

PATIENT
  Sex: Female
  Weight: 61.744 kg

DRUGS (6)
  1. HUMIRA [Suspect]
     Dates: start: 20120608
  2. METHOTREXATE [Concomitant]
     Indication: RHEUMATOID ARTHRITIS
  3. METHOTREXATE [Concomitant]
  4. SYNTHROID [Concomitant]
     Indication: HYPOTHYROIDISM
  5. ESTRASORB [Concomitant]
     Indication: HORMONE REPLACEMENT THERAPY
  6. HUMIRA [Suspect]
     Indication: RHEUMATOID ARTHRITIS
     Dates: end: 20090808

REACTIONS (7)
  - ROAD TRAFFIC ACCIDENT [None]
  - WRIST FRACTURE [None]
  - FACE CRUSHING [None]
  - RHEUMATOID ARTHRITIS [None]
  - AMNESIA [None]
  - UPPER LIMB FRACTURE [None]
  - DRUG DOSE OMISSION [None]
